FAERS Safety Report 9369646 (Version 1)
Quarter: 2013Q2

REPORT INFORMATION
  Report Type: Spontaneous
  Country: US (occurrence: None)
  Receive Date: 20130625
  Receipt Date: 20130625
  Transmission Date: 20140414
  Serious: Yes (Life-Threatening, Hospitalization, Other)
  Sender: FDA-Public Use
  Company Number: None

PATIENT
  Age: 31 Year
  Sex: Female
  Weight: 57.61 kg

DRUGS (1)
  1. MIRENA [Suspect]

REACTIONS (7)
  - Pain [None]
  - Ovarian cyst [None]
  - Ectopic pregnancy [None]
  - Abortion spontaneous [None]
  - Haemorrhage [None]
  - Muscle spasms [None]
  - Human chorionic gonadotropin abnormal [None]
